FAERS Safety Report 8775719 (Version 2)
Quarter: 2012Q4

REPORT INFORMATION
  Report Type: 
  Country: US (occurrence: US)
  Receive Date: 20120910
  Receipt Date: 20120926
  Transmission Date: 20130627
  Serious: Yes (Other)
  Sender: FDA-Public Use
  Company Number: US-PFIZER INC-2012220451

PATIENT
  Age: 83 Year
  Sex: Female
  Weight: 97.96 kg

DRUGS (7)
  1. SERTRALINE HYDROCHLORIDE [Suspect]
     Indication: DEPRESSION
     Dosage: 100 mg, daily
  2. SERTRALINE HYDROCHLORIDE [Suspect]
     Dosage: 100 mg, daily
     Dates: start: 20120901, end: 20120904
  3. MAGNESIUM OXIDE [Concomitant]
     Indication: THYROID DISORDER
     Dosage: 400 mg, 3x/day
  4. PLAVIX [Concomitant]
     Indication: CARDIAC DISORDER
     Dosage: 75 mg, daily
  5. PLAVIX [Concomitant]
     Indication: HYPERTENSION
  6. LANTUS [Concomitant]
     Indication: DIABETES MELLITUS
     Dosage: 15 units daily
  7. HUMALOG MIX 25 [Concomitant]
     Indication: DIABETES MELLITUS
     Dosage: UNK, daily

REACTIONS (6)
  - Hypersensitivity [Recovered/Resolved]
  - Palpitations [Recovered/Resolved]
  - Feeling abnormal [Recovered/Resolved]
  - Tremor [Recovered/Resolved]
  - Muscle spasms [Recovered/Resolved]
  - Crying [Recovered/Resolved]
